FAERS Safety Report 6226157-8 (Version None)
Quarter: 2009Q2

REPORT INFORMATION
  Report Type: 
  Country: None (occurrence: None)
  Receive Date: 20090612
  Receipt Date: 20090515
  Transmission Date: 20091009
  Serious: No
  Sender: FDA-Public Use
  Company Number: US-ABBOTT-09P-163-0572482-00

PATIENT
  Sex: Female
  Weight: 77.18 kg

DRUGS (6)
  1. HUMIRA [Suspect]
     Indication: RHEUMATOID ARTHRITIS
     Dates: start: 20080101, end: 20090406
  2. HUMIRA [Suspect]
     Dates: start: 20090511
  3. ALTACE [Concomitant]
     Indication: DRUG USE FOR UNKNOWN INDICATION
  4. SINEMET [Concomitant]
     Indication: DRUG USE FOR UNKNOWN INDICATION
  5. ELAVIL [Concomitant]
     Indication: DRUG USE FOR UNKNOWN INDICATION
  6. SELDENE [Concomitant]
     Indication: DRUG USE FOR UNKNOWN INDICATION

REACTIONS (1)
  - SKIN ULCER [None]
